FAERS Safety Report 6139851-4 (Version None)
Quarter: 2009Q1

REPORT INFORMATION
  Report Type: 
  Country: None (occurrence: None)
  Receive Date: 20090324
  Receipt Date: 20090317
  Transmission Date: 20090719
  Serious: Yes (Hospitalization)
  Sender: FDA-Public Use
  Company Number: GXKR2009DK03469

PATIENT
  Age: 63 Year
  Sex: Male
  Weight: 80 kg

DRUGS (3)
  1. SIMVASTATIN [Suspect]
     Indication: PROPHYLAXIS
     Dosage: 40 MG, ORAL
     Route: 048
     Dates: start: 20090201, end: 20090213
  2. DIPYRIDAMOLE [Suspect]
     Indication: THROMBOSIS PROPHYLAXIS
     Dosage: 2 DF, ORAL
     Route: 048
     Dates: start: 20090201
  3. DICILLIN (DICLOXACILLIN SODIUM MONOHYDRATE) [Concomitant]

REACTIONS (3)
  - DRUG INTERACTION [None]
  - GOUTY ARTHRITIS [None]
  - MYALGIA [None]
